FAERS Safety Report 7073591-2 (Version None)
Quarter: 2010Q4

REPORT INFORMATION
  Report Type: 
  Country: None (occurrence: None)
  Receive Date: 20101029
  Receipt Date: 20101021
  Transmission Date: 20110411
  Serious: Yes (Death, Other)
  Sender: FDA-Public Use
  Company Number: US-SANOFI-AVENTIS-2010SA064891

PATIENT
  Age: 84 Year
  Sex: Female
  Weight: 51 kg

DRUGS (17)
  1. LOVENOX [Suspect]
     Route: 058
     Dates: start: 20080805, end: 20080809
  2. HEPARIN [Suspect]
     Indication: HIP FRACTURE
     Route: 041
     Dates: start: 20080701, end: 20080809
  3. WARFARIN SODIUM [Suspect]
     Route: 048
     Dates: end: 20080722
  4. POTASSIUM CHLORIDE [Concomitant]
  5. FOSAMAX [Concomitant]
  6. LASIX [Concomitant]
  7. ARIMIDEX [Concomitant]
  8. LANOXIN [Concomitant]
  9. ARMOUR THYROID [Concomitant]
  10. COREG [Concomitant]
  11. COLACE [Concomitant]
  12. PERCOCET [Concomitant]
  13. PHENERGAN [Concomitant]
  14. ZOLOFT [Concomitant]
  15. ACETAMINOPHEN [Concomitant]
  16. MILK OF MAGNESIA TAB [Concomitant]
  17. AMBIEN [Concomitant]

REACTIONS (4)
  - DEATH [None]
  - DEEP VEIN THROMBOSIS [None]
  - HEPARIN-INDUCED THROMBOCYTOPENIA [None]
  - METABOLIC ENCEPHALOPATHY [None]
